FAERS Safety Report 7307172-X (Version None)
Quarter: 2011Q1

REPORT INFORMATION
  Report Type: 
  Country: None (occurrence: None)
  Receive Date: 20110223
  Receipt Date: 20110216
  Transmission Date: 20110831
  Serious: Yes (Life-Threatening)
  Sender: FDA-Public Use
  Company Number: JP-CELGENEUS-087-21880-11021877

PATIENT
  Sex: Male
  Weight: 70.7 kg

DRUGS (23)
  1. MELBIN [Concomitant]
     Indication: DIABETES MELLITUS
     Route: 048
     Dates: start: 20101009
  2. LENADEX [Suspect]
     Route: 048
     Dates: start: 20101106, end: 20101107
  3. REVLIMID [Suspect]
     Indication: MULTIPLE MYELOMA
     Route: 048
     Dates: start: 20101009, end: 20101029
  4. REVLIMID [Suspect]
     Route: 048
     Dates: start: 20101106, end: 20101126
  5. REVLIMID [Suspect]
     Route: 048
     Dates: start: 20101204, end: 20101224
  6. LENADEX [Suspect]
     Route: 048
     Dates: start: 20101218, end: 20101219
  7. ZYLORIC [Concomitant]
     Route: 048
     Dates: start: 20101009
  8. ZOVIRAX [Concomitant]
     Indication: PROPHYLAXIS
     Route: 048
     Dates: start: 20101009
  9. LENADEX [Suspect]
     Route: 048
     Dates: start: 20101023, end: 20101024
  10. LENADEX [Suspect]
     Route: 048
     Dates: start: 20101204, end: 20101205
  11. KINEDAK [Concomitant]
     Route: 048
     Dates: start: 20101009
  12. METHYCOBAL [Concomitant]
     Route: 048
     Dates: start: 20101009
  13. LENADEX [Suspect]
     Indication: MULTIPLE MYELOMA
     Route: 048
     Dates: start: 20101009, end: 20101010
  14. LANIRAPID [Concomitant]
     Indication: ARRHYTHMIA
     Route: 048
     Dates: start: 20101009
  15. NU-LOTAN [Concomitant]
     Indication: HYPERTENSION
     Route: 048
     Dates: start: 20101009
  16. MUCOSTA [Concomitant]
     Indication: PROPHYLAXIS
     Route: 048
     Dates: start: 20101009
  17. LYRICA [Concomitant]
     Route: 048
     Dates: start: 20101009
  18. ACTOS [Concomitant]
     Indication: DIABETES MELLITUS
     Route: 048
     Dates: start: 20101009
  19. AMARYL [Concomitant]
     Indication: DIABETES MELLITUS
     Route: 048
     Dates: start: 20101009
  20. DIFLUCAN [Concomitant]
     Indication: PROPHYLAXIS
     Route: 048
     Dates: start: 20101009
  21. ASPIRIN [Concomitant]
     Indication: PROPHYLAXIS
     Route: 048
     Dates: start: 20101009
  22. LENADEX [Suspect]
     Route: 048
     Dates: start: 20101120, end: 20101121
  23. BEZATOL SR [Concomitant]
     Route: 048
     Dates: start: 20101009

REACTIONS (4)
  - HYPERGLYCAEMIA [None]
  - BLOOD TRIGLYCERIDES INCREASED [None]
  - BLOOD CHOLESTEROL INCREASED [None]
  - GAMMA-GLUTAMYLTRANSFERASE INCREASED [None]
